FAERS Safety Report 6885847-4 (Version None)
Quarter: 2010Q3

REPORT INFORMATION
  Report Type: 
  Country: None (occurrence: None)
  Receive Date: 20100729
  Receipt Date: 20090203
  Transmission Date: 20110219
  Serious: No
  Sender: FDA-Public Use
  Company Number: US-PFIZER INC-2008154692

PATIENT

DRUGS (2)
  1. CELEBREX [Suspect]
  2. ACETYLSALICYLIC ACID SRT [Interacting]

REACTIONS (2)
  - DRUG INTERACTION [None]
  - GASTROINTESTINAL DISORDER [None]
